FAERS Safety Report 11897564 (Version 1)
Quarter: 2016Q1

REPORT INFORMATION
  Report Type: Spontaneous
  Country: US (occurrence: US)
  Receive Date: 20160108
  Receipt Date: 20160108
  Transmission Date: 20160526
  Serious: Yes (Death)
  Sender: FDA-Public Use
  Company Number: US-BEH-2015057407

PATIENT
  Age: 75 Year
  Sex: Male
  Weight: 67 kg

DRUGS (30)
  1. DOXYCYCLINE. [Concomitant]
     Active Substance: DOXYCYCLINE
  2. PRAMIPEXOLE. [Concomitant]
     Active Substance: PRAMIPEXOLE
  3. LIPITOR [Concomitant]
     Active Substance: ATORVASTATIN CALCIUM
  4. KLOR-CON [Concomitant]
     Active Substance: POTASSIUM CHLORIDE
  5. ADVAIR HFA [Concomitant]
     Active Substance: FLUTICASONE PROPIONATE\SALMETEROL XINAFOATE
  6. ACETAMINOPHEN. [Concomitant]
     Active Substance: ACETAMINOPHEN
  7. MIRAPEX [Concomitant]
     Active Substance: PRAMIPEXOLE DIHYDROCHLORIDE
  8. PROVENTIL [Concomitant]
     Active Substance: ALBUTEROL
  9. HIZENTRA [Suspect]
     Active Substance: HUMAN IMMUNOGLOBULIN G
     Route: 058
     Dates: end: 20151227
  10. CARVEDILOL. [Concomitant]
     Active Substance: CARVEDILOL
  11. OMEPRAZOLE. [Concomitant]
     Active Substance: OMEPRAZOLE
  12. DOXAZOSIN [Concomitant]
     Active Substance: DOXAZOSIN\DOXAZOSIN MESYLATE
  13. DICLOFENAC [Concomitant]
     Active Substance: DICLOFENAC
  14. REQUIP [Concomitant]
     Active Substance: ROPINIROLE HYDROCHLORIDE
  15. HYDROCHLORTHIAZIDE [Concomitant]
     Active Substance: HYDROCHLOROTHIAZIDE
  16. LISINOPRIL. [Concomitant]
     Active Substance: LISINOPRIL
  17. HIZENTRA [Suspect]
     Active Substance: HUMAN IMMUNOGLOBULIN G
     Indication: IMMUNODEFICIENCY COMMON VARIABLE
     Route: 058
     Dates: end: 20151227
  18. HYDRALAZINE [Concomitant]
     Active Substance: HYDRALAZINE HYDROCHLORIDE
  19. AMLODIPINE [Concomitant]
     Active Substance: AMLODIPINE BESYLATE
  20. EPIPEN [Concomitant]
     Active Substance: EPINEPHRINE
  21. POTASSIUM [Concomitant]
     Active Substance: POTASSIUM
  22. MICARDIS [Concomitant]
     Active Substance: TELMISARTAN
  23. VITAMIN E [Concomitant]
     Active Substance: .ALPHA.-TOCOPHEROL
  24. LIDOCAINE. [Concomitant]
     Active Substance: LIDOCAINE
  25. ORPHENADRINE [Concomitant]
     Active Substance: ORPHENADRINE
  26. NABUMETONE. [Concomitant]
     Active Substance: NABUMETONE
  27. FLONASE [Concomitant]
     Active Substance: FLUTICASONE PROPIONATE
  28. SINGULAIR [Concomitant]
     Active Substance: MONTELUKAST SODIUM
  29. ALBUTEROL. [Concomitant]
     Active Substance: ALBUTEROL
  30. THEOPHYLLINE [Concomitant]
     Active Substance: THEOPHYLLINE ANHYDROUS

REACTIONS (1)
  - Death [Fatal]

NARRATIVE: CASE EVENT DATE: 20151227
